FAERS Safety Report 9893100 (Version 2)
Quarter: 2014Q1

REPORT INFORMATION
  Report Type: Spontaneous
  Country: US (occurrence: US)
  Receive Date: 20140213
  Receipt Date: 20140311
  Transmission Date: 20141002
  Serious: Yes (Hospitalization, Other)
  Sender: FDA-Public Use
  Company Number: US-BRISTOL-MYERS SQUIBB COMPANY-20124210

PATIENT
  Age: 86 Year
  Sex: Female
  Weight: 51.7 kg

DRUGS (10)
  1. COUMADIN [Suspect]
     Indication: CEREBROVASCULAR ACCIDENT
     Dates: start: 2002
  2. CITALOPRAM [Concomitant]
  3. TRIAMTERENE + HCTZ [Concomitant]
  4. DIGOXIN [Concomitant]
  5. ARTICAINE HCL [Concomitant]
  6. TIZANIDINE [Concomitant]
  7. HYDROCODONE [Concomitant]
     Indication: NEURALGIA
     Dosage: 1DF: 5/500 UNITS NOS
  8. LOVASTATIN [Concomitant]
  9. LYRICA [Concomitant]
  10. DELTAZEN [Concomitant]

REACTIONS (4)
  - Hip fracture [Unknown]
  - Fall [Unknown]
  - Rib fracture [Unknown]
  - Dizziness [Unknown]
